FAERS Safety Report 7290697-3 (Version None)
Quarter: 2011Q1

REPORT INFORMATION
  Report Type: 
  Country: None (occurrence: None)
  Receive Date: 20110210
  Receipt Date: 20110210
  Transmission Date: 20110831
  Serious: Yes (Life-Threatening, Hospitalization)
  Sender: FDA-Public Use
  Company Number: None

PATIENT
  Age: 58 Year
  Sex: Male
  Weight: 83 kg

DRUGS (1)
  1. DAPSONE [Suspect]
     Dates: start: 20101015, end: 20101015

REACTIONS (1)
  - TOXIC EPIDERMAL NECROLYSIS [None]
